FAERS Safety Report 8707471 (Version 3)
Quarter: 2013Q4

REPORT INFORMATION
  Report Type: Spontaneous
  Country: US (occurrence: US)
  Receive Date: 20120804
  Receipt Date: 20131031
  Transmission Date: 20140711
  Serious: No
  Sender: FDA-Public Use
  Company Number: US-009507513-2012SP031262

PATIENT
  Sex: Female

DRUGS (1)
  1. NUVARING [Suspect]
     Indication: CONTRACEPTION
     Dosage: 1 DF, EVERY 4 WEEKS
     Route: 067
     Dates: start: 201110

REACTIONS (2)
  - Discomfort [Unknown]
  - Inappropriate schedule of drug administration [Unknown]
